FAERS Safety Report 9006429 (Version 1)
Quarter: 2012Q4

REPORT INFORMATION
  Report Type: Spontaneous
  Country: ES (occurrence: None)
  Receive Date: 20121227
  Receipt Date: 20121227
  Transmission Date: 20130627
  Serious: Yes (Other)
  Sender: FDA-Public Use
  Company Number: 2012-11514

PATIENT
  Age: 6 Year
  Sex: Female

DRUGS (2)
  1. LEVETIRACETAM (LEVETIRACETAM) [Suspect]
     Indication: SEIZURE
  2. SODIUM VALPROATE [Suspect]
     Indication: SEIZURE

REACTIONS (4)
  - Autism [None]
  - Tremor [None]
  - Headache [None]
  - Vomiting [None]
